FAERS Safety Report 7178957-8 (Version None)
Quarter: 2010Q4

REPORT INFORMATION
  Report Type: 
  Country: None (occurrence: None)
  Receive Date: 20101217
  Receipt Date: 20101217
  Transmission Date: 20110411
  Serious: No
  Sender: FDA-Public Use
  Company Number: None

PATIENT
  Sex: Female
  Weight: 51.7 kg

DRUGS (3)
  1. CARBOPLATIN [Suspect]
     Dosage: 539 MG
     Dates: end: 20101124
  2. ERBITUX [Suspect]
     Dosage: 975 MG
     Dates: end: 20101201
  3. TAXOL [Suspect]
     Dosage: 300 MG
     Dates: end: 20101124

REACTIONS (1)
  - NEUTROPHIL COUNT DECREASED [None]
